FAERS Safety Report 25300900 (Version 1)
Quarter: 2025Q2

REPORT INFORMATION
  Report Type: Report from Study
  Country: US (occurrence: US)
  Receive Date: 20250512
  Receipt Date: 20250512
  Transmission Date: 20250716
  Serious: Yes (Other)
  Sender: BAYER HEALTHCARE PHARMACEUTICALS INC.
  Company Number: US-BAYER-2025A060354

PATIENT
  Age: 59 Year
  Sex: Male

DRUGS (1)
  1. STIVARGA [Suspect]
     Active Substance: REGORAFENIB MONOHYDRATE
     Indication: Colorectal cancer
     Dosage: 80 MG, QD
     Route: 048
     Dates: start: 20250423, end: 20250428

REACTIONS (5)
  - Illness [None]
  - Pain [Unknown]
  - Asthenia [Not Recovered/Not Resolved]
  - Product prescribing issue [None]
  - Product use issue [None]

NARRATIVE: CASE EVENT DATE: 20250423
